FAERS Safety Report 4796538-8 (Version None)
Quarter: 2005Q3

REPORT INFORMATION
  Report Type: 
  Country: None (occurrence: None)
  Receive Date: 20050916
  Receipt Date: 20041004
  Transmission Date: 20060218
  Serious: Yes (Other)
  Sender: FDA-Public Use
  Company Number: US-JNJFOC-20041001848

PATIENT
  Age: 54 Year
  Sex: Male
  Weight: 69.8539 kg

DRUGS (8)
  1. TOPAMAX [Suspect]
     Indication: EPILEPSY
     Dosage: ({400 MG A DAY)
     Dates: start: 20030901
  2. TRILEPTOL (OXCARBAZEPINE) [Concomitant]
  3. LIPITOR [Concomitant]
  4. ACIPHEX [Concomitant]
  5. OMEGA 3 (FISH OIL) [Concomitant]
  6. ASPIRIN [Concomitant]
  7. VARDENAFIL HYDROCHLORIDE (VARDENAFIL HYDROCHLORIDE) [Concomitant]
  8. DEPAKOTE [Concomitant]

REACTIONS (7)
  - CHEST PAIN [None]
  - COMMUNICATION DISORDER [None]
  - CONVULSION [None]
  - ERECTILE DYSFUNCTION [None]
  - MENTAL IMPAIRMENT [None]
  - MITRAL VALVE INCOMPETENCE [None]
  - WEIGHT DECREASED [None]
